FAERS Safety Report 4333158-3 (Version None)
Quarter: 2004Q2

REPORT INFORMATION
  Report Type: 
  Country: None (occurrence: None)
  Receive Date: 20040405
  Receipt Date: 20040405
  Transmission Date: 20050107
  Serious: Yes (Death)
  Sender: FDA-Public Use
  Company Number: None

PATIENT
  Age: 35 Year
  Sex: Female
  Weight: 113.3993 kg

DRUGS (4)
  1. DURAGESIC [Suspect]
     Indication: MIGRAINE
     Dosage: Q 72 HOURS TRANSDERMAL
     Route: 062
     Dates: start: 20040106, end: 20040110
  2. MIGRAINE MEDICATIONS [Concomitant]
  3. DEPRESSION MEDICATIONS [Concomitant]
  4. VALIUM [Concomitant]

REACTIONS (2)
  - MEDICATION ERROR [None]
  - OVERDOSE [None]
